FAERS Safety Report 6354767-6 (Version None)
Quarter: 2009Q3

REPORT INFORMATION
  Report Type: 
  Country: None (occurrence: None)
  Receive Date: 20090909
  Receipt Date: 20090831
  Transmission Date: 20100115
  Serious: Yes (Hospitalization)
  Sender: FDA-Public Use
  Company Number: GXKR2009AU09763

PATIENT
  Age: 20 Year
  Sex: Male

DRUGS (5)
  1. PREDNISONE [Suspect]
     Indication: MENINGITIS TUBERCULOUS
     Dosage: 40 MG, QD, ORAL, 50 MG, QD, ORAL, WEANING DOSAGES, ORAL
     Route: 048
  2. ISONIAZID [Concomitant]
  3. ETAMBUTOL (ETHAMBUTOL) [Concomitant]
  4. PYRAZINAMIDE [Concomitant]
  5. RIFAMPICIN [Concomitant]

REACTIONS (4)
  - AGITATION [None]
  - ANXIETY [None]
  - IRRITABILITY [None]
  - SUICIDAL IDEATION [None]
